FAERS Safety Report 21522345 (Version 13)
Quarter: 2023Q1

REPORT INFORMATION
  Report Type: Report from Study
  Country: US (occurrence: US)
  Receive Date: 20221028
  Receipt Date: 20230227
  Transmission Date: 20230418
  Serious: No
  Sender: FDA-Public Use
  Company Number: US-NOVARTISTESTPH-NVSC2022US243103

PATIENT
  Sex: Male

DRUGS (5)
  1. COSENTYX [Suspect]
     Active Substance: SECUKINUMAB
     Indication: Psoriasis
     Dosage: 300 MG, QMO
     Route: 058
  2. COSENTYX [Suspect]
     Active Substance: SECUKINUMAB
     Dosage: UNK
     Route: 058
  3. COSENTYX [Suspect]
     Active Substance: SECUKINUMAB
     Dosage: 300 MG, QW
     Route: 058
  4. COSENTYX [Suspect]
     Active Substance: SECUKINUMAB
     Dosage: 262.5 MG (2 X 150 MG) (1 FULL PEN AND 3/4TH OF THE OTHER)
     Route: 065
  5. COSENTYX [Suspect]
     Active Substance: SECUKINUMAB
     Dosage: UNK
     Route: 058
     Dates: start: 20221123

REACTIONS (10)
  - Skin fissures [Unknown]
  - Dry skin [Unknown]
  - Rash macular [Unknown]
  - Psoriasis [Unknown]
  - Incorrect dose administered by device [Unknown]
  - Device dispensing error [Unknown]
  - Product supply issue [Unknown]
  - Device malfunction [Unknown]
  - Device leakage [Unknown]
  - Therapeutic product effect incomplete [Unknown]
